FAERS Safety Report 18648808 (Version 1)
Quarter: 2020Q4

REPORT INFORMATION
  Report Type: Spontaneous
  Country: US (occurrence: US)
  Receive Date: 20201222
  Receipt Date: 20201222
  Transmission Date: 20210114
  Serious: Yes (Other)
  Sender: FDA-Public Use
  Company Number: None

PATIENT
  Age: 76 Year
  Sex: Male
  Weight: 70 kg

DRUGS (1)
  1. TAXOTERE [Suspect]
     Active Substance: DOCETAXEL
     Indication: PROSTATE CANCER
     Dosage: ?          OTHER FREQUENCY:EVERY 3 WEEKS;?
     Route: 041

REACTIONS (8)
  - Chest discomfort [None]
  - Dyspnoea [None]
  - Headache [None]
  - Agitation [None]
  - Flushing [None]
  - Therapy interrupted [None]
  - Chills [None]
  - Feeling hot [None]

NARRATIVE: CASE EVENT DATE: 20201221
